FAERS Safety Report 7648402-4 (Version None)
Quarter: 2011Q3

REPORT INFORMATION
  Report Type: 
  Country: None (occurrence: None)
  Receive Date: 20110801
  Receipt Date: 20110728
  Transmission Date: 20111222
  Serious: Yes (Life-Threatening, Hospitalization, Other)
  Sender: FDA-Public Use
  Company Number: JP-PFIZER INC-2011128237

PATIENT
  Age: 7 Month
  Sex: Male
  Weight: 6.2 kg

DRUGS (11)
  1. OXATOMIDE [Suspect]
     Indication: DERMATITIS ATOPIC
     Dosage: 2 MG, 3X/DAY
     Route: 048
     Dates: start: 20101001, end: 20110302
  2. LEVOTHYROXINE SODIUM [Suspect]
     Dosage: 10 UG, 1X/DAY
     Dates: start: 20110510, end: 20110620
  3. OXATOMIDE [Suspect]
     Dosage: 2 MG, 3X/DAY
     Route: 048
     Dates: start: 20110323, end: 20110413
  4. IPD [Suspect]
     Indication: DERMATITIS ATOPIC
     Dosage: 15 MG, 2X/DAY
     Route: 048
     Dates: start: 20110302
  5. LEVOTHYROXINE SODIUM [Suspect]
     Dosage: 20 UG, 1X/DAY
     Route: 048
     Dates: start: 20110308, end: 20110311
  6. ATARAX [Suspect]
     Indication: DERMATITIS ATOPIC
     Dosage: 5 MG, 3X/DAY
     Route: 048
     Dates: start: 20101001, end: 20110302
  7. ATARAX [Suspect]
     Dosage: 5 MG, 3X/DAY
     Route: 048
     Dates: start: 20110323, end: 20110413
  8. RIZABEN [Suspect]
     Dosage: 10 MG, 3X/DAY
     Route: 048
     Dates: start: 20110323, end: 20110413
  9. LEVOTHYROXINE SODIUM [Suspect]
     Indication: HYPOTHYROIDISM
     Dosage: 10 UG, 1X/DAY
     Route: 048
     Dates: start: 20110303, end: 20110307
  10. LEVOTHYROXINE SODIUM [Suspect]
     Dosage: 30 UG, 1X/DAY
     Route: 048
     Dates: start: 20110312
  11. RIZABEN [Suspect]
     Indication: DERMATITIS ATOPIC
     Dosage: 10 MG, 3X/DAY
     Route: 048
     Dates: start: 20101001, end: 20110302

REACTIONS (4)
  - WEIGHT DECREASED [None]
  - FEEDING DISORDER NEONATAL [None]
  - LIVER DISORDER [None]
  - SOMNOLENCE [None]
